FAERS Safety Report 9511479 (Version 1)
Quarter: 2013Q1

REPORT INFORMATION
  Report Type: Spontaneous
  Country: US (occurrence: None)
  Receive Date: 20130305
  Receipt Date: 20130305
  Transmission Date: 20140127
  Serious: No
  Sender: FDA-Public Use
  Company Number: 163-21880-12051950

PATIENT
  Age: 76 Year
  Sex: Female

DRUGS (9)
  1. REVLIMID [Suspect]
     Indication: PLASMA CELL MYELOMA
     Dosage: 5 MG, 1 TO 1 D, PO
     Route: 048
     Dates: start: 20070905
  2. MAGNESIUM MALATE (MAGNESIUM MALATE) (UNKNOWN) [Concomitant]
  3. WARFARIN SODIUM (WARFARIN SODIUM) (UNKNOWN) [Concomitant]
  4. ALLOPURINOL (ALLOPURINOL) (UNKNOWN) [Concomitant]
  5. SOTALOL HCL (SOTALOL HYDROCHLORIDE) (UNKNOWN) [Concomitant]
  6. LEVOTHYROXINE SODIUM (LEVOTHYROXINE SODIUM) (UNKNOWN) [Concomitant]
  7. FELODIPINE (FELODIPINE) (UNKNOWN) [Concomitant]
  8. MULTIVITIAMINS FOR HER (UNKNOWN) [Concomitant]
  9. VITAMIN C [Concomitant]

REACTIONS (1)
  - Hip fracture [None]
